FAERS Safety Report 8984163 (Version 2)
Quarter: 2013Q2

REPORT INFORMATION
  Report Type: Spontaneous
  Country: FR (occurrence: None)
  Receive Date: 20121214
  Receipt Date: 20130520
  Transmission Date: 20140414
  Serious: Yes (Hospitalization)
  Sender: FDA-Public Use
  Company Number: INT_00168_2012

PATIENT
  Age: 0 Day
  Sex: Female

DRUGS (21)
  1. CEFTRIAXON (MANUFACTURER UNKNOWN) (CEFTRIAXON-DINATRIUM) (CEFTRIAXON-DINATRIUM) [Suspect]
     Indication: PRODUCT USED FOR UNKNOWN INDICATION
     Dosage: (DF)
     Route: 064
     Dates: start: 20120304, end: 20120316
  2. KABIVEN /07718101/ [Suspect]
     Indication: PARENTERAL NUTRITION
     Dosage: (DF)
     Dates: start: 20120304, end: 20120310
  3. PROPOFOL [Suspect]
     Indication: INDUCTION OF ANAESTHESIA
     Dosage: (DF)
     Route: 042
     Dates: start: 20120310, end: 20120310
  4. MIDAZOLAM [Suspect]
     Indication: PRODUCT USED FOR UNKNOWN INDICATION
     Dosage: (DF)
  5. SUFENTANIL [Suspect]
     Indication: PRODUCT USED FOR UNKNOWN INDICATION
     Dosage: (DF)
  6. ATRACURIUM [Suspect]
     Indication: PRODUCT USED FOR UNKNOWN INDICATION
     Dosage: (DF)
  7. TAZOCILLINE [Suspect]
     Indication: PRODUCT USED FOR UNKNOWN INDICATION
     Dosage: (DF)
  8. CELESTAMINE /00252801/ [Suspect]
     Indication: PRODUCT USED FOR UNKNOWN INDICATION
     Dosage: (DF)
  9. KETAMINE [Suspect]
     Indication: PRODUCT USED FOR UNKNOWN INDICATION
     Dosage: (DF)
  10. PERFALGAN [Suspect]
     Indication: PRODUCT USED FOR UNKNOWN INDICATION
     Dosage: (DF)
  11. TRACTOCILE [Suspect]
     Indication: PRODUCT USED FOR UNKNOWN INDICATION
     Dosage: (DF)
  12. ZOPHREN [Suspect]
     Indication: PRODUCT USED FOR UNKNOWN INDICATION
     Dosage: (DF)
  13. INEXIUM [Suspect]
     Indication: PRODUCT USED FOR UNKNOWN INDICATION
     Dosage: (DF)
  14. LOVENOX [Suspect]
     Indication: PRODUCT USED FOR UNKNOWN INDICATION
     Dosage: (DF)
  15. OLICLINOMEL [Suspect]
     Indication: PRODUCT USED FOR UNKNOWN INDICATION
     Dosage: (DF)
  16. TAGAMET /00397401/ [Concomitant]
  17. EMLA /00675501/ [Concomitant]
  18. AMOXICILLIN (AMOXICILLIN) [Suspect]
     Indication: PRODUCT USED FOR UNKNOWN INDICATION
     Dosage: (DF)
  19. FUMAFER [Suspect]
     Indication: PRODUCT USED FOR UNKNOWN INDICATION
     Dosage: (DF)
  20. TAMIFLU [Suspect]
     Indication: PRODUCT USED FOR UNKNOWN INDICATION
     Dosage: (DF)
  21. RULID [Suspect]
     Indication: PRODUCT USED FOR UNKNOWN INDICATION
     Dosage: (DF)

REACTIONS (5)
  - Foetal growth restriction [None]
  - Cerebral haemorrhage [None]
  - Caesarean section [None]
  - Premature baby [None]
  - Maternal drugs affecting foetus [None]
